FAERS Safety Report 9241099 (Version 6)
Quarter: 2015Q1

REPORT INFORMATION
  Report Type: Spontaneous
  Country: US (occurrence: US)
  Receive Date: 20130419
  Receipt Date: 20150202
  Transmission Date: 20150721
  Serious: Yes (Hospitalization, Disabling, Other)
  Sender: FDA-Public Use
  Company Number: US-009507513-1304USA009081

PATIENT
  Sex: Female
  Weight: 79.82 kg

DRUGS (4)
  1. FOSAMAX [Suspect]
     Active Substance: ALENDRONATE SODIUM
     Indication: OSTEOPENIA
     Dosage: 10 MG, UNK
     Route: 048
     Dates: start: 2000, end: 20001020
  2. FOSAMAX [Suspect]
     Active Substance: ALENDRONATE SODIUM
     Dosage: 70 MG, UNK
     Route: 048
     Dates: start: 20001020, end: 20070629
  3. ALENDRONATE SODIUM. [Suspect]
     Active Substance: ALENDRONATE SODIUM
     Indication: OSTEOPENIA
     Dosage: 70 MG, QW
     Route: 048
     Dates: start: 20080807
  4. FOSAMAX PLUS D [Suspect]
     Active Substance: ALENDRONATE SODIUM\CHOLECALCIFEROL
     Indication: OSTEOPENIA
     Dosage: 70/2800 MG, UNK
     Route: 048
     Dates: start: 20070111, end: 20081010

REACTIONS (35)
  - Hypertension [Unknown]
  - Hypothyroidism [Unknown]
  - Hypertensive nephropathy [Unknown]
  - Hypercalcaemia [Unknown]
  - Gastroenteritis [Recovered/Resolved]
  - Osteoarthritis [Unknown]
  - Appendicectomy [Unknown]
  - Low turnover osteopathy [Not Recovered/Not Resolved]
  - Vitamin D deficiency [Recovered/Resolved]
  - Metabolic syndrome [Unknown]
  - Urinary tract infection [Unknown]
  - Tonsillectomy [Unknown]
  - Open reduction of fracture [Unknown]
  - Bone metabolism disorder [Unknown]
  - Ankle fracture [Unknown]
  - Mass [Unknown]
  - Femur fracture [Not Recovered/Not Resolved]
  - Chronic kidney disease [Not Recovered/Not Resolved]
  - Myositis [Unknown]
  - Paratracheal lymphadenopathy [Unknown]
  - Blood cholesterol increased [Unknown]
  - Type 2 diabetes mellitus [Unknown]
  - Bronchitis [Unknown]
  - Hysterectomy [Unknown]
  - Myalgia [Unknown]
  - Deep vein thrombosis [Unknown]
  - Foot operation [Unknown]
  - Muscle spasms [Unknown]
  - Nausea [Unknown]
  - Dizziness [Unknown]
  - Osteoporosis [Unknown]
  - Cardiomegaly [Unknown]
  - Pulmonary congestion [Unknown]
  - Fatigue [Unknown]
  - Haemorrhagic anaemia [Unknown]

NARRATIVE: CASE EVENT DATE: 2005
